FAERS Safety Report 15412776 (Version 1)
Quarter: 2018Q3

REPORT INFORMATION
  Report Type: Spontaneous
  Country: FR (occurrence: FR)
  Receive Date: 20180921
  Receipt Date: 20180921
  Transmission Date: 20181010
  Serious: Yes (Other)
  Sender: FDA-Public Use
  Company Number: FR-009507513-1809FRA006348

PATIENT
  Age: 70 Year
  Sex: Male

DRUGS (1)
  1. ZEPATIER [Suspect]
     Active Substance: ELBASVIR\GRAZOPREVIR
     Route: 048

REACTIONS (3)
  - Viral mutation identified [Unknown]
  - Hepatitis C [Unknown]
  - Hepatitis C virus test positive [Unknown]
